FAERS Safety Report 6015324-4 (Version None)
Quarter: 2008Q4

REPORT INFORMATION
  Report Type: 
  Country: None (occurrence: None)
  Receive Date: 20081222
  Receipt Date: 20081212
  Transmission Date: 20090506
  Serious: Yes (Other)
  Sender: FDA-Public Use
  Company Number: SE-PFIZER INC-2008153897

PATIENT

DRUGS (2)
  1. NORVASC [Suspect]
     Indication: HYPERTENSION
     Dosage: 7.5 MG, 1X/DAY
  2. COZAAR [Suspect]
     Indication: HYPERTENSION
     Dosage: 100 MG DAILY

REACTIONS (2)
  - GINGIVITIS [None]
  - OSTEITIS [None]
